FAERS Safety Report 16807256 (Version 1)
Quarter: 2019Q3

REPORT INFORMATION
  Report Type: Spontaneous
  Country: MX (occurrence: MX)
  Receive Date: 20190913
  Receipt Date: 20190913
  Transmission Date: 20191005
  Serious: Yes (Other)
  Sender: FDA-Public Use
  Company Number: MX-009507513-1909MEX004919

PATIENT
  Age: 69 Year
  Sex: Male

DRUGS (1)
  1. KEYTRUDA [Suspect]
     Active Substance: PEMBROLIZUMAB
     Indication: TRANSITIONAL CELL CARCINOMA
     Dosage: 200 MG, EVERY 3 WEEKS
     Route: 042
     Dates: start: 201709, end: 20180509

REACTIONS (3)
  - Weight increased [Unknown]
  - Facial paralysis [Recovered/Resolved]
  - Intra-abdominal fluid collection [Unknown]

NARRATIVE: CASE EVENT DATE: 201801
